FAERS Safety Report 4503091-2 (Version None)
Quarter: 2004Q4

REPORT INFORMATION
  Report Type: 
  Country: None (occurrence: None)
  Receive Date: 20041117
  Receipt Date: 20040917
  Transmission Date: 20050328
  Serious: Yes (Hospitalization)
  Sender: FDA-Public Use
  Company Number: FR-ROCHE-380918

PATIENT
  Age: 41 Year
  Sex: Male

DRUGS (3)
  1. ROFERON-A [Suspect]
     Indication: HEPATIC CIRRHOSIS
     Dosage: A STOP DATE OF 13 JUNE 2003 WAS ALSO REPORTED
     Route: 058
     Dates: start: 20030602, end: 20040717
  2. REBETOL [Suspect]
     Indication: HEPATIC CIRRHOSIS
     Dosage: A STOP DATE OF 13 JUNE 2003 WAS ALSO REPORTED
     Route: 048
     Dates: start: 20030602, end: 20030717
  3. BACTRIM DS [Suspect]
     Indication: DRUG USE FOR UNKNOWN INDICATION
     Route: 048
     Dates: start: 20030521, end: 20030617

REACTIONS (7)
  - ASTHENIA [None]
  - HYPERBILIRUBINAEMIA [None]
  - JAUNDICE [None]
  - LIVER DISORDER [None]
  - PANCYTOPENIA [None]
  - PORTAL HYPERTENSION [None]
  - SPLENOMEGALY [None]
